FAERS Safety Report 5362941-0 (Version None)
Quarter: 2007Q2

REPORT INFORMATION
  Report Type: 
  Country: None (occurrence: None)
  Receive Date: 20070619
  Receipt Date: 20070605
  Transmission Date: 20071010
  Serious: Yes (Other)
  Sender: FDA-Public Use
  Company Number: US-GENENTECH-242620

PATIENT

DRUGS (2)
  1. BLINDED PLACEBO [Suspect]
     Indication: MYOPATHY
  2. BLINDED RITUXIMAB [Suspect]
     Indication: MYOPATHY

REACTIONS (1)
  - PULMONARY HYPERTENSION [None]
